FAERS Safety Report 7392759-9 (Version None)
Quarter: 2011Q1

REPORT INFORMATION
  Report Type: 
  Country: None (occurrence: None)
  Receive Date: 20110330
  Receipt Date: 20110330
  Transmission Date: 20110831
  Serious: Yes (Death, Life-Threatening, Hospitalization, Disabling, Congenital Anomaly, Other)
  Sender: FDA-Public Use
  Company Number: None

PATIENT
  Age: 45 Year
  Sex: Female
  Weight: 119.296 kg

DRUGS (3)
  1. COPAXONE [Suspect]
  2. COPAXONE [Suspect]
     Indication: RELAPSING-REMITTING MULTIPLE SCLEROSIS
     Dosage: 20 MG ONCE DAILY SQ
     Route: 058
     Dates: start: 20101231, end: 20110305
  3. MANNITOL [Suspect]

REACTIONS (2)
  - INJECTION SITE REACTION [None]
  - CELLULITIS [None]
